FAERS Safety Report 6309768-0 (Version None)
Quarter: 2009Q3

REPORT INFORMATION
  Report Type: 
  Country: None (occurrence: None)
  Receive Date: 20090814
  Receipt Date: 20090804
  Transmission Date: 20100115
  Serious: Yes (Hospitalization)
  Sender: FDA-Public Use
  Company Number: JP-BIOGENIDEC-2009BI014525

PATIENT
  Age: 33 Year
  Sex: Female

DRUGS (11)
  1. AVONEX [Suspect]
     Indication: RELAPSING-REMITTING MULTIPLE SCLEROSIS
     Route: 030
     Dates: start: 20090204
  2. LENDORMIN [Concomitant]
     Indication: DRUG USE FOR UNKNOWN INDICATION
  3. DEPAS [Concomitant]
     Indication: DRUG USE FOR UNKNOWN INDICATION
  4. ROHYPNOL [Concomitant]
     Indication: DRUG USE FOR UNKNOWN INDICATION
  5. VOLTAREN [Concomitant]
     Indication: DRUG USE FOR UNKNOWN INDICATION
  6. FERRUM [Concomitant]
     Indication: DRUG USE FOR UNKNOWN INDICATION
     Dates: start: 20090424
  7. NAPROXEN [Concomitant]
     Dates: start: 20090513
  8. MUCOSTA [Concomitant]
     Dates: start: 20090513
  9. SENNOSIDE [Concomitant]
     Dates: start: 20090514
  10. ACTIT [Concomitant]
     Dates: start: 20090512, end: 20090516
  11. MYONAL [Concomitant]
     Indication: DRUG USE FOR UNKNOWN INDICATION
     Dates: start: 20090520

REACTIONS (4)
  - BLOOD POTASSIUM DECREASED [None]
  - DIZZINESS POSTURAL [None]
  - MULTIPLE SCLEROSIS RELAPSE [None]
  - PALPITATIONS [None]
